FAERS Safety Report 9174498 (Version 2)
Quarter: 2013Q4

REPORT INFORMATION
  Report Type: Spontaneous
  Country: US (occurrence: US)
  Receive Date: 20130320
  Receipt Date: 20131226
  Transmission Date: 20140711
  Serious: Yes (Hospitalization, Other)
  Sender: FDA-Public Use
  Company Number: US-BAYER-2013-033231

PATIENT
  Age: 25 Year
  Sex: Female

DRUGS (10)
  1. YAZ [Suspect]
  2. YASMIN [Suspect]
  3. OCELLA [Suspect]
  4. COLACE [Concomitant]
     Dosage: UNK
     Route: 048
     Dates: start: 20091014
  5. PERCOCET [Concomitant]
     Route: 048
  6. VICODIN [Concomitant]
     Route: 048
  7. DICYCLOMINE [Concomitant]
     Route: 048
  8. MOTRIN [Concomitant]
     Route: 048
  9. DOCUSATE [Concomitant]
     Route: 048
  10. IBUPROFEN [Concomitant]
     Route: 048

REACTIONS (4)
  - Cholecystectomy [None]
  - Cholecystitis chronic [None]
  - Injury [None]
  - Emotional distress [None]
